FAERS Safety Report 14028388 (Version 1)
Quarter: 2017Q3

REPORT INFORMATION
  Report Type: Spontaneous
  Country: US (occurrence: US)
  Receive Date: 20170930
  Receipt Date: 20170930
  Transmission Date: 20171128
  Serious: Yes (Hospitalization, Other)
  Sender: FDA-Public Use
  Company Number: US-AMGEN-USASP2017145004

PATIENT
  Sex: Male

DRUGS (1)
  1. XGEVA [Suspect]
     Active Substance: DENOSUMAB
     Indication: METASTASES TO BONE
     Dosage: 120 MG, Q4WK
     Route: 065
     Dates: start: 201402

REACTIONS (4)
  - Gastrointestinal haemorrhage [Unknown]
  - Intervertebral disc degeneration [Unknown]
  - Spinal column stenosis [Unknown]
  - Spinal cord compression [Unknown]

NARRATIVE: CASE EVENT DATE: 20170502
